FAERS Safety Report 9361917 (Version 1)
Quarter: 2013Q2

REPORT INFORMATION
  Report Type: Spontaneous
  Country: US (occurrence: US)
  Receive Date: 20130621
  Receipt Date: 20130621
  Transmission Date: 20140414
  Serious: No
  Sender: FDA-Public Use
  Company Number: US-009507513-1306USA006711

PATIENT
  Sex: Female

DRUGS (5)
  1. ZETIA [Suspect]
     Dosage: UNK
     Route: 048
  2. GLUCOPHAGE [Concomitant]
     Dosage: 850, TID
  3. GLYNASE (GLYBURIDE) [Concomitant]
     Dosage: 6 MG, QD
  4. SYNTHROID [Concomitant]
     Dosage: UNK, QD
  5. BYSTOLIC [Concomitant]
     Dosage: 20 MG, QD

REACTIONS (1)
  - Abdominal pain upper [Unknown]
